FAERS Safety Report 20297388 (Version 3)
Quarter: 2022Q2

REPORT INFORMATION
  Report Type: Report from Study
  Country: US (occurrence: US)
  Receive Date: 20220105
  Receipt Date: 20220408
  Transmission Date: 20220721
  Serious: Yes (Hospitalization, Other)
  Sender: FDA-Public Use
  Company Number: US-PHARMACOVIGILANCE-US-KAD-21-00414

PATIENT
  Sex: Male
  Weight: 96.485 kg

DRUGS (1)
  1. REZUROCK [Suspect]
     Active Substance: BELUMOSUDIL
     Indication: Chronic graft versus host disease
     Dosage: 200 MILLIGRAM, QD
     Route: 048
     Dates: start: 20211214

REACTIONS (5)
  - Hypersomnia [Unknown]
  - Respiratory tract infection fungal [Unknown]
  - Gastrointestinal tube insertion [Unknown]
  - Hospitalisation [Unknown]
  - Product dose omission issue [Unknown]
